FAERS Safety Report 25101945 (Version 3)
Quarter: 2025Q3

REPORT INFORMATION
  Report Type: Spontaneous
  Country: EU (occurrence: EU)
  Receive Date: 20250320
  Receipt Date: 20250924
  Transmission Date: 20251021
  Serious: Yes (Other)
  Sender: MYLAN
  Company Number: EU-ZENTIVA-2025-ZT-029607

PATIENT
  Age: 72 Year
  Sex: Male

DRUGS (32)
  1. DEXAMETHASONE [Suspect]
     Active Substance: DEXAMETHASONE
     Indication: Immunoglobulin G4 related disease
     Dosage: UNK (THERAPY CONTINUED AND COMPLETED NINE CYCLES)
     Dates: start: 20230818
  2. DEXAMETHASONE [Suspect]
     Active Substance: DEXAMETHASONE
     Dosage: UNK (THERAPY CONTINUED AND COMPLETED NINE CYCLES)
     Route: 065
     Dates: start: 20230818
  3. DEXAMETHASONE [Suspect]
     Active Substance: DEXAMETHASONE
     Dosage: UNK (THERAPY CONTINUED AND COMPLETED NINE CYCLES)
     Route: 065
     Dates: start: 20230818
  4. DEXAMETHASONE [Suspect]
     Active Substance: DEXAMETHASONE
     Dosage: UNK (THERAPY CONTINUED AND COMPLETED NINE CYCLES)
     Dates: start: 20230818
  5. METHYLPREDNISOLONE [Suspect]
     Active Substance: METHYLPREDNISOLONE
     Indication: Immunoglobulin G4 related disease
  6. METHYLPREDNISOLONE [Suspect]
     Active Substance: METHYLPREDNISOLONE
     Route: 042
  7. METHYLPREDNISOLONE [Suspect]
     Active Substance: METHYLPREDNISOLONE
     Route: 042
  8. METHYLPREDNISOLONE [Suspect]
     Active Substance: METHYLPREDNISOLONE
  9. LENALIDOMIDE [Suspect]
     Active Substance: LENALIDOMIDE
     Indication: Immunoglobulin G4 related disease
     Dosage: 20 MILLIGRAM, QD (COMPLETED NINE CYCLES)
     Dates: start: 20230818
  10. LENALIDOMIDE [Suspect]
     Active Substance: LENALIDOMIDE
     Dosage: 20 MILLIGRAM, QD (COMPLETED NINE CYCLES)
     Dates: start: 20230818
  11. LENALIDOMIDE [Suspect]
     Active Substance: LENALIDOMIDE
     Dosage: 20 MILLIGRAM, QD (COMPLETED NINE CYCLES)
     Route: 065
     Dates: start: 20230818
  12. LENALIDOMIDE [Suspect]
     Active Substance: LENALIDOMIDE
     Dosage: 20 MILLIGRAM, QD (COMPLETED NINE CYCLES)
     Route: 065
     Dates: start: 20230818
  13. LENALIDOMIDE [Suspect]
     Active Substance: LENALIDOMIDE
     Dosage: 10 MILLIGRAM, QD (COMPLETED NINE CYCLES)
     Dates: start: 20230818
  14. LENALIDOMIDE [Suspect]
     Active Substance: LENALIDOMIDE
     Dosage: 10 MILLIGRAM, QD (COMPLETED NINE CYCLES)
     Dates: start: 20230818
  15. LENALIDOMIDE [Suspect]
     Active Substance: LENALIDOMIDE
     Dosage: 10 MILLIGRAM, QD (COMPLETED NINE CYCLES)
     Route: 065
     Dates: start: 20230818
  16. LENALIDOMIDE [Suspect]
     Active Substance: LENALIDOMIDE
     Dosage: 10 MILLIGRAM, QD (COMPLETED NINE CYCLES)
     Route: 065
     Dates: start: 20230818
  17. REVLIMID [Suspect]
     Active Substance: LENALIDOMIDE
     Indication: Immunoglobulin G4 related disease
  18. REVLIMID [Suspect]
     Active Substance: LENALIDOMIDE
  19. REVLIMID [Suspect]
     Active Substance: LENALIDOMIDE
     Route: 065
  20. REVLIMID [Suspect]
     Active Substance: LENALIDOMIDE
     Route: 065
  21. REVLIMID [Suspect]
     Active Substance: LENALIDOMIDE
  22. REVLIMID [Suspect]
     Active Substance: LENALIDOMIDE
  23. REVLIMID [Suspect]
     Active Substance: LENALIDOMIDE
     Route: 065
  24. REVLIMID [Suspect]
     Active Substance: LENALIDOMIDE
     Route: 065
  25. TOLODODEKIN ALFA [Suspect]
     Active Substance: TOLODODEKIN ALFA
     Indication: Immunoglobulin G4 related disease
     Dosage: 1800 MILLIGRAM, QW (THERAPY CONTINUED AND COMPLETED NINE CYCLES)
     Dates: start: 20230818
  26. TOLODODEKIN ALFA [Suspect]
     Active Substance: TOLODODEKIN ALFA
     Dosage: 1800 MILLIGRAM, QW (THERAPY CONTINUED AND COMPLETED NINE CYCLES)
     Route: 065
     Dates: start: 20230818
  27. TOLODODEKIN ALFA [Suspect]
     Active Substance: TOLODODEKIN ALFA
     Dosage: 1800 MILLIGRAM, QW (THERAPY CONTINUED AND COMPLETED NINE CYCLES)
     Route: 065
     Dates: start: 20230818
  28. TOLODODEKIN ALFA [Suspect]
     Active Substance: TOLODODEKIN ALFA
     Dosage: 1800 MILLIGRAM, QW (THERAPY CONTINUED AND COMPLETED NINE CYCLES)
     Dates: start: 20230818
  29. RITUXIMAB [Suspect]
     Active Substance: RITUXIMAB
     Indication: Immunoglobulin G4 related disease
  30. RITUXIMAB [Suspect]
     Active Substance: RITUXIMAB
     Route: 042
  31. RITUXIMAB [Suspect]
     Active Substance: RITUXIMAB
     Route: 042
  32. RITUXIMAB [Suspect]
     Active Substance: RITUXIMAB

REACTIONS (2)
  - Neutropenia [Recovered/Resolved]
  - Drug ineffective [Unknown]
